FAERS Safety Report 9412723 (Version 2)
Quarter: 2013Q4

REPORT INFORMATION
  Report Type: Spontaneous
  Country: US (occurrence: US)
  Receive Date: 20130722
  Receipt Date: 20131003
  Transmission Date: 20140711
  Serious: No
  Sender: FDA-Public Use
  Company Number: US-PFIZER INC-2013213379

PATIENT
  Age: 53 Year
  Sex: Female
  Weight: 74.38 kg

DRUGS (3)
  1. PRISTIQ [Suspect]
     Indication: DEPRESSION
     Dosage: 50 MG DAILY
     Dates: start: 2012, end: 20130711
  2. PRISTIQ [Suspect]
     Dosage: 100 MG DAILY
     Dates: start: 20130712, end: 201307
  3. PRISTIQ [Suspect]
     Dosage: 50 MG DAILY
     Dates: start: 201307

REACTIONS (4)
  - Urticaria [Unknown]
  - Reaction to drug excipients [Unknown]
  - Skin disorder [Unknown]
  - Pruritus generalised [Unknown]
